FAERS Safety Report 5888137-1 (Version None)
Quarter: 2008Q3

REPORT INFORMATION
  Report Type: 
  Country: None (occurrence: None)
  Receive Date: 20080918
  Receipt Date: 20080910
  Transmission Date: 20090109
  Serious: Yes (Other)
  Sender: FDA-Public Use
  Company Number: US-ABBOTT-08P-163-0462077-00

PATIENT
  Age: 30 Year
  Sex: Female

DRUGS (5)
  1. LUPRON DEPOT [Suspect]
     Indication: ENDOMETRIOSIS
     Route: 030
     Dates: start: 20080211, end: 20080515
  2. NORETHINDRONE ACETATE [Suspect]
     Indication: PROGESTIN REPLACEMENT THERAPY
     Route: 048
     Dates: start: 20080421
  3. TOPIRAMATE [Concomitant]
     Indication: CONVULSION
     Route: 048
  4. DROSPIRENONE W/ETHINYLESTRADIOL [Concomitant]
     Indication: CONTRACEPTION
     Route: 048
     Dates: start: 20071101
  5. ESTRADIOL [Concomitant]
     Indication: BLOOD OESTROGEN
     Route: 062

REACTIONS (3)
  - BLOOD CHLORIDE INCREASED [None]
  - CONVULSION [None]
  - WHITE BLOOD CELL COUNT INCREASED [None]
